FAERS Safety Report 16424363 (Version 1)
Quarter: 2019Q2

REPORT INFORMATION
  Report Type: Spontaneous
  Country: ES (occurrence: ES)
  Receive Date: 20190613
  Receipt Date: 20190613
  Transmission Date: 20190711
  Serious: Yes (Other)
  Sender: FDA-Public Use
  Company Number: ES-ACCORD-132905

PATIENT
  Age: 70 Year
  Sex: Female

DRUGS (2)
  1. REVOLADE [Interacting]
     Active Substance: ELTROMBOPAG
     Indication: IMMUNE THROMBOCYTOPENIC PURPURA
     Dosage: VARIABLE
     Route: 048
     Dates: start: 20180401
  2. ATORVASTATIN/ATORVASTATIN CALCIUM [Suspect]
     Active Substance: ATORVASTATIN CALCIUM
     Indication: HYPERLIPIDAEMIA
     Dosage: VARIABLE IRREGULAR DOSE
     Route: 048
     Dates: start: 201801, end: 20181128

REACTIONS (4)
  - Drug interaction [Unknown]
  - Thrombocytopenia [Recovering/Resolving]
  - Fatigue [Recovered/Resolved]
  - Myalgia [Recovered/Resolved]

NARRATIVE: CASE EVENT DATE: 20181003
